FAERS Safety Report 7900513-1 (Version None)
Quarter: 2011Q4

REPORT INFORMATION
  Report Type: 
  Country: None (occurrence: None)
  Receive Date: 20111108
  Receipt Date: 20111102
  Transmission Date: 20120403
  Serious: Yes (Hospitalization, Other)
  Sender: FDA-Public Use
  Company Number: HR-BRISTOL-MYERS SQUIBB COMPANY-16211039

PATIENT
  Age: 58 Year
  Sex: Female

DRUGS (1)
  1. SPRYCEL [Suspect]
     Indication: CHRONIC MYELOID LEUKAEMIA
     Route: 048
     Dates: start: 20110808, end: 20111021

REACTIONS (5)
  - PYREXIA [None]
  - RASH GENERALISED [None]
  - ARTHRALGIA [None]
  - JOINT SWELLING [None]
  - PULMONARY EMBOLISM [None]
